FAERS Safety Report 23078142 (Version 2)
Quarter: 2023Q4

REPORT INFORMATION
  Report Type: Spontaneous
  Country: IT (occurrence: IT)
  Receive Date: 20231018
  Receipt Date: 20231031
  Transmission Date: 20240109
  Serious: Yes (Other)
  Sender: FDA-Public Use
  Company Number: IT-ASTELLAS-2023US030906

PATIENT
  Age: 57 Year
  Sex: Male

DRUGS (3)
  1. PADCEV [Suspect]
     Active Substance: ENFORTUMAB VEDOTIN-EJFV
     Indication: Product used for unknown indication
     Route: 065
     Dates: end: 20231004
  2. PADCEV [Suspect]
     Active Substance: ENFORTUMAB VEDOTIN-EJFV
     Dosage: 1 MG/KG, UNKNOWN FREQ. (TOTAL OF 90 MG PER INFUSION)
     Route: 065
     Dates: start: 20231005
  3. PEMBROLIZUMAB [Concomitant]
     Active Substance: PEMBROLIZUMAB
     Indication: Product used for unknown indication
     Dosage: UNK UNK, UNKNOWN FREQ.
     Route: 065

REACTIONS (2)
  - Colitis ulcerative [Unknown]
  - Diarrhoea [Unknown]
